FAERS Safety Report 25898648 (Version 3)
Quarter: 2025Q4

REPORT INFORMATION
  Report Type: Spontaneous
  Country: US (occurrence: US)
  Receive Date: 20251009
  Receipt Date: 20251106
  Transmission Date: 20260117
  Serious: Yes (Other)
  Sender: ROCHE
  Company Number: US-ROCHE-10000401673

PATIENT
  Sex: Female
  Weight: 44.9 kg

DRUGS (2)
  1. XOLAIR [Suspect]
     Active Substance: OMALIZUMAB
     Indication: Idiopathic urticaria
     Route: 058
     Dates: start: 202303
  2. XOLAIR [Suspect]
     Active Substance: OMALIZUMAB
     Route: 058
     Dates: start: 20230223

REACTIONS (7)
  - Abdominal distension [Unknown]
  - Off label use [Unknown]
  - Injection site pain [Unknown]
  - Postural orthostatic tachycardia syndrome [Unknown]
  - Polycystic ovarian syndrome [Unknown]
  - Infection [Unknown]
  - Urticaria [Unknown]
